FAERS Safety Report 7844170-1 (Version None)
Quarter: 2011Q4

REPORT INFORMATION
  Report Type: 
  Country: None (occurrence: None)
  Receive Date: 20111025
  Receipt Date: 20111011
  Transmission Date: 20120403
  Serious: Yes (Hospitalization, Other)
  Sender: FDA-Public Use
  Company Number: US-ELI_LILLY_AND_COMPANY-US200910001145

PATIENT
  Sex: Female
  Weight: 58.06 kg

DRUGS (10)
  1. FORTEO [Suspect]
     Dosage: 20 UG, QD
     Route: 058
  2. MULTIVITAMIN [Concomitant]
     Dosage: UNK, BID
  3. METHOTREXATE [Concomitant]
     Dosage: 5 MG, WEEKLY (1/W)
  4. NEURONTIN [Concomitant]
     Dosage: 300 MG, TID
  5. ULTRAM [Concomitant]
     Dosage: 50 MG, PRN
  6. REQUIP [Concomitant]
     Dosage: 4 MG, TID
  7. SINEMET [Concomitant]
     Dosage: UNK, TID
  8. ASPIRIN [Concomitant]
     Dosage: UNK, QD
  9. FORTEO [Suspect]
     Indication: OSTEOPOROSIS
     Dosage: 20 UG, DAILY (1/D)
     Route: 058
     Dates: start: 20090925
  10. LODOSYN [Concomitant]
     Dosage: 25 MG, TID

REACTIONS (7)
  - INJECTION SITE EXTRAVASATION [None]
  - LIGAMENT RUPTURE [None]
  - SWELLING [None]
  - INJECTION SITE PRURITUS [None]
  - PAIN [None]
  - FALL [None]
  - INJECTION SITE HAEMATOMA [None]
